FAERS Safety Report 24078144 (Version 1)
Quarter: 2024Q3

REPORT INFORMATION
  Report Type: Other
  Country: FR (occurrence: FR)
  Receive Date: 20240711
  Receipt Date: 20240711
  Transmission Date: 20241017
  Serious: Yes (Hospitalization, Other)
  Sender: ASTELLAS
  Company Number: None

PATIENT
  Age: 61 Year
  Sex: Male
  Weight: 65.2 kg

DRUGS (4)
  1. MYCAMINE [Suspect]
     Active Substance: MICAFUNGIN SODIUM
     Indication: Product used for unknown indication
     Route: 042
     Dates: start: 20240412, end: 20240412
  2. MYCAMINE [Suspect]
     Active Substance: MICAFUNGIN SODIUM
     Route: 042
     Dates: start: 20240413, end: 20240413
  3. MYCAMINE [Suspect]
     Active Substance: MICAFUNGIN SODIUM
     Route: 042
     Dates: start: 20240414, end: 20240414
  4. PROPOFOL [Suspect]
     Active Substance: PROPOFOL
     Indication: Anaesthesia
     Dosage: 2.3 MG/KG, OTHER (/H)
     Route: 042
     Dates: start: 20240412, end: 20240412

REACTIONS (2)
  - Hepatic cytolysis [Recovered/Resolved]
  - Organ failure [Recovered/Resolved]

NARRATIVE: CASE EVENT DATE: 20240412
